FAERS Safety Report 12685970 (Version 1)
Quarter: 2016Q3

REPORT INFORMATION
  Report Type: Spontaneous
  Country: US (occurrence: US)
  Receive Date: 20160825
  Receipt Date: 20160825
  Transmission Date: 20161109
  Serious: No
  Sender: FDA-Public Use
  Company Number: US-NOVOPROD-482242

PATIENT
  Age: 61 Year
  Sex: Male

DRUGS (1)
  1. VICTOZA [Suspect]
     Active Substance: LIRAGLUTIDE
     Indication: PRODUCT USED FOR UNKNOWN INDICATION
     Route: 058

REACTIONS (8)
  - Blood pressure increased [Unknown]
  - Diarrhoea [Unknown]
  - Weight increased [Unknown]
  - Blood glucose increased [Unknown]
  - Back pain [Unknown]
  - Malaise [Unknown]
  - Abdominal pain lower [Unknown]
  - Constipation [Unknown]
